FAERS Safety Report 7451997-7 (Version None)
Quarter: 2011Q2

REPORT INFORMATION
  Report Type: 
  Country: None (occurrence: None)
  Receive Date: 20110502
  Receipt Date: 20110420
  Transmission Date: 20111010
  Serious: Yes (Other)
  Sender: FDA-Public Use
  Company Number: PHHY2011MA34947

PATIENT
  Age: 32 Year
  Sex: Male

DRUGS (3)
  1. PHENOBARBITAL [Suspect]
     Indication: CONVULSION
     Dosage: UNK UKN, UNK
  2. LEVOMEPROMAZINE [Suspect]
     Dosage: UNK UKN, UNK
  3. HALOPERIDOL [Suspect]
     Dosage: UNK UKN, UNK

REACTIONS (11)
  - INSOMNIA [None]
  - DELUSION [None]
  - FAHR'S DISEASE [None]
  - TREMOR [None]
  - ANXIETY [None]
  - PSEUDOHYPOPARATHYROIDISM [None]
  - IRRITABILITY [None]
  - CONVULSION [None]
  - PSYCHOTIC DISORDER [None]
  - DELUSIONAL DISORDER, UNSPECIFIED TYPE [None]
  - DYSARTHRIA [None]
